FAERS Safety Report 12062380 (Version 2)
Quarter: 2016Q1

REPORT INFORMATION
  Report Type: Spontaneous
  Country: FR (occurrence: FR)
  Receive Date: 20160210
  Receipt Date: 20160225
  Transmission Date: 20160526
  Serious: Yes (Hospitalization, Other)
  Sender: FDA-Public Use
  Company Number: FR-ASTRAZENECA-2016SE12518

PATIENT
  Age: 28736 Day
  Sex: Female

DRUGS (13)
  1. NOVORAPID [Concomitant]
     Active Substance: INSULIN ASPART
  2. VALSARTAN. [Concomitant]
     Active Substance: VALSARTAN
  3. NOVOMIX [Concomitant]
     Active Substance: INSULIN ASPART
  4. DOLIPRANE [Concomitant]
     Active Substance: ACETAMINOPHEN
  5. LASILIX [Concomitant]
     Active Substance: FUROSEMIDE
  6. AMLOR [Concomitant]
     Active Substance: AMLODIPINE BESYLATE
  7. EUPRESSYL [Concomitant]
     Active Substance: URAPIDIL
  8. LOXAPAC [Concomitant]
     Active Substance: LOXAPINE SUCCINATE
  9. INEXIUM [Suspect]
     Active Substance: ESOMEPRAZOLE
     Indication: RECTAL HAEMORRHAGE
     Route: 042
     Dates: start: 20151226, end: 20151227
  10. SERESTA [Concomitant]
     Active Substance: OXAZEPAM
  11. KARDEGIC [Concomitant]
     Active Substance: ASPIRIN LYSINE
  12. INEGY [Concomitant]
     Active Substance: EZETIMIBE\SIMVASTATIN
  13. TIORFAN [Concomitant]
     Active Substance: RACECADOTRIL

REACTIONS (4)
  - Hyperglycaemia [Unknown]
  - Product use issue [Unknown]
  - Coma [Recovered/Resolved]
  - Off label use [Unknown]

NARRATIVE: CASE EVENT DATE: 20151227
